FAERS Safety Report 5742726-3 (Version None)
Quarter: 2008Q2

REPORT INFORMATION
  Report Type: 
  Country: None (occurrence: None)
  Receive Date: 20080519
  Receipt Date: 20080515
  Transmission Date: 20081010
  Serious: Yes (Other)
  Sender: FDA-Public Use
  Company Number: B0520651A

PATIENT
  Age: 32 Year
  Sex: Female

DRUGS (2)
  1. SAWACILLIN [Suspect]
     Route: 048
     Dates: start: 20070601, end: 20070601
  2. UNKNOWN DRUG [Suspect]

REACTIONS (1)
  - LIVER DISORDER [None]
